FAERS Safety Report 9397620 (Version 1)
Quarter: 2013Q3

REPORT INFORMATION
  Report Type: Spontaneous
  Country: US (occurrence: US)
  Receive Date: 20130712
  Receipt Date: 20130712
  Transmission Date: 20140515
  Serious: Yes (Hospitalization)
  Sender: FDA-Public Use
  Company Number: US-ELI_LILLY_AND_COMPANY-US201307001710

PATIENT
  Sex: Female

DRUGS (3)
  1. CYMBALTA [Suspect]
     Indication: DEPRESSION
     Dosage: 30 MG, UNKNOWN
  2. ARICEPT [Concomitant]
     Dosage: UNK, UNKNOWN
  3. REMERON [Concomitant]
     Dosage: 50 MG, UNKNOWN

REACTIONS (1)
  - Dyspnoea [Recovered/Resolved]
